FAERS Safety Report 16383248 (Version 1)
Quarter: 2019Q2

REPORT INFORMATION
  Report Type: Spontaneous
  Country: US (occurrence: US)
  Receive Date: 20190603
  Receipt Date: 20190603
  Transmission Date: 20190711
  Serious: No
  Sender: FDA-Public Use
  Company Number: US-PFIZER INC-2019228131

PATIENT
  Age: 65 Year
  Sex: Female
  Weight: 95.25 kg

DRUGS (3)
  1. PROPRANOLOL [Concomitant]
     Active Substance: PROPRANOLOL HYDROCHLORIDE
     Indication: HYPERTENSION
     Dosage: 80 MG, 1X/DAY(ONCE AT NIGHT AT BED TIME)
  2. GABAPENTIN. [Suspect]
     Active Substance: GABAPENTIN
     Indication: PARALYSIS
  3. GABAPENTIN. [Suspect]
     Active Substance: GABAPENTIN
     Indication: HYPOAESTHESIA
     Dosage: 300 MG, 2X/DAY

REACTIONS (6)
  - Dizziness postural [Unknown]
  - Product use in unapproved indication [Unknown]
  - Vision blurred [Unknown]
  - Off label use [Unknown]
  - Dysarthria [Unknown]
  - Weight increased [Unknown]
